FAERS Safety Report 22635534 (Version 1)
Quarter: 2023Q2

REPORT INFORMATION
  Report Type: Spontaneous
  Country: US (occurrence: US)
  Receive Date: 20230623
  Receipt Date: 20230623
  Transmission Date: 20230722
  Serious: No
  Sender: FDA-Public Use
  Company Number: US-RIGEL PHARMACEUTICALS, INC.- 2023OLU000016

PATIENT
  Sex: Female
  Weight: 66.667 kg

DRUGS (11)
  1. REZLIDHIA [Suspect]
     Active Substance: OLUTASIDENIB
     Indication: Cholangiocarcinoma
     Dosage: 150 MILLIGRAM, BID
     Route: 048
     Dates: start: 20230309
  2. ONDANSETRON [Concomitant]
     Active Substance: ONDANSETRON
     Indication: Product used for unknown indication
     Dosage: 8 MILLIGRAM, PRN
     Route: 048
  3. PEPCID AC [Concomitant]
     Active Substance: FAMOTIDINE
     Indication: Product used for unknown indication
     Dosage: 10 MILLIGRAM, BID
     Route: 048
  4. DOCUSATE SODIUM\SENNA LEAF [Concomitant]
     Active Substance: DOCUSATE SODIUM\SENNA LEAF
     Indication: Product used for unknown indication
     Dosage: 8.6 - 50 MG, BID
     Route: 048
  5. TUMS [Concomitant]
     Active Substance: CALCIUM CARBONATE
     Indication: Product used for unknown indication
     Dosage: 500 MILLIGRAM, PRN
     Route: 048
  6. VITAMIN K2 + D3 [COLECALCIFEROL;MENAQUINONE-7] [Concomitant]
     Indication: Product used for unknown indication
     Dosage: 45-2000 MILLIGRAM, QD
     Route: 048
  7. ZADITOR [Concomitant]
     Active Substance: KETOTIFEN FUMARATE
     Indication: Product used for unknown indication
     Dosage: DROPS, QD
  8. ZYRTEC [Concomitant]
     Active Substance: CETIRIZINE HYDROCHLORIDE
     Indication: Product used for unknown indication
     Dosage: 10 MILLIGRAM, QD
     Route: 048
  9. LORAZEPAM [Concomitant]
     Active Substance: LORAZEPAM
     Indication: Product used for unknown indication
     Dosage: 0.5 MILLIGRAM, PRN
     Route: 048
  10. MIRALAX [Concomitant]
     Active Substance: POLYETHYLENE GLYCOL 3350
     Indication: Product used for unknown indication
     Dosage: 17 GRAM, QD
     Route: 048
  11. FISH OIL\OMEGA-3 FATTY ACIDS [Concomitant]
     Active Substance: FISH OIL\OMEGA-3 FATTY ACIDS
     Indication: Product used for unknown indication
     Dosage: 1000 MILLIGRAM, QD
     Route: 048

REACTIONS (4)
  - Off label use [Unknown]
  - Hypersensitivity [Unknown]
  - Cough [Unknown]
  - Rash [Recovering/Resolving]

NARRATIVE: CASE EVENT DATE: 20230101
